FAERS Safety Report 4961301-1 (Version None)
Quarter: 2006Q1

REPORT INFORMATION
  Report Type: 
  Country: None (occurrence: None)
  Receive Date: 20060328
  Receipt Date: 20060317
  Transmission Date: 20060701
  Serious: Yes (Death)
  Sender: FDA-Public Use
  Company Number: 13652

PATIENT
  Age: 74 Year
  Sex: Female

DRUGS (3)
  1. METHOTREXATE [Suspect]
     Indication: RHEUMATOID ARTHRITIS
  2. TRIMETHOPRIM [Suspect]
     Indication: URINARY TRACT INFECTION
     Dosage: 150 MG PO
     Route: 048
     Dates: start: 20050830, end: 20050902
  3. FOLATE [Concomitant]

REACTIONS (3)
  - DRUG INTERACTION [None]
  - NEUTROPENIA [None]
  - SEPTIC SHOCK [None]
